FAERS Safety Report 7048050-3 (Version None)
Quarter: 2010Q4

REPORT INFORMATION
  Report Type: 
  Country: None (occurrence: None)
  Receive Date: 20101015
  Receipt Date: 20091104
  Transmission Date: 20110411
  Serious: Yes (Death, Hospitalization)
  Sender: FDA-Public Use
  Company Number: B0623770A

PATIENT
  Age: 89 Year
  Sex: Male

DRUGS (16)
  1. XYZAL [Suspect]
     Indication: PRODUCT USED FOR UNKNOWN INDICATION
     Dosage: 5MG PER DAY
     Route: 048
     Dates: start: 20070615, end: 20070622
  2. PREDNISOLONE [Suspect]
     Indication: PRODUCT USED FOR UNKNOWN INDICATION
     Dosage: 20MG PER DAY
     Route: 048
     Dates: start: 20070615, end: 20070622
  3. SALBUTAMOL [Suspect]
     Indication: PRODUCT USED FOR UNKNOWN INDICATION
     Route: 045
     Dates: start: 20070615, end: 20070622
  4. LEVODROPROPIZINE [Concomitant]
     Dosage: 240MG PER DAY
     Route: 048
     Dates: start: 20070615, end: 20070622
  5. KETOPROFEN [Concomitant]
     Route: 065
  6. DOXOFYLLINE [Concomitant]
     Dosage: 240MG PER DAY
     Route: 048
     Dates: start: 20070615, end: 20070622
  7. MAGNESIUM OXIDE [Concomitant]
     Dosage: 1500MG PER DAY
     Route: 065
  8. NORMAL SALINE [Concomitant]
  9. CIMETIDINE [Concomitant]
     Dosage: 600MG PER DAY
     Route: 065
     Dates: start: 20070622, end: 20070704
  10. TRAMADOL HCL [Concomitant]
     Dosage: 150MG PER DAY
     Route: 030
     Dates: start: 20070622, end: 20070716
  11. METHOCARBAMOL [Concomitant]
     Dosage: 1000MG PER DAY
     Route: 065
     Dates: start: 20070622
  12. METOCLOPRAMIDE [Concomitant]
     Route: 065
     Dates: start: 20070622
  13. TALNIFLUMATE [Concomitant]
     Dosage: 1100MG PER DAY
     Route: 065
     Dates: start: 20070622
  14. BROMHEXINE [Concomitant]
     Dosage: 24MG PER DAY
     Route: 065
     Dates: start: 20070622, end: 20070730
  15. BISACODYL [Concomitant]
  16. PHENIRAMINE [Concomitant]
     Dosage: 2MG PER DAY
     Route: 042

REACTIONS (3)
  - COMPRESSION FRACTURE [None]
  - DYSPNOEA [None]
  - PNEUMONIA [None]
